FAERS Safety Report 8829642 (Version 1)
Quarter: 2012Q4

REPORT INFORMATION
  Report Type: 
  Country: US (occurrence: US)
  Receive Date: 20121008
  Receipt Date: 20121008
  Transmission Date: 20130627
  Serious: No
  Sender: FDA-Public Use
  Company Number: US-TEVA-309888USA

PATIENT
  Sex: Female
  Weight: 52.21 kg

DRUGS (3)
  1. QVAR [Suspect]
     Indication: HYPERSENSITIVITY
     Route: 055
     Dates: start: 201110, end: 201110
  2. QVAR [Suspect]
     Indication: LUNG DISORDER
  3. AMLODIPINE [Concomitant]
     Indication: HYPERTENSION
     Dosage: 2.5 Milligram Daily;

REACTIONS (3)
  - Oropharyngeal pain [Unknown]
  - Malaise [Unknown]
  - Cough [Recovered/Resolved]
